FAERS Safety Report 7418017-1 (Version None)
Quarter: 2011Q2

REPORT INFORMATION
  Report Type: 
  Country: None (occurrence: None)
  Receive Date: 20110415
  Receipt Date: 20110329
  Transmission Date: 20111010
  Serious: Yes (Hospitalization, Disabling)
  Sender: FDA-Public Use
  Company Number: FR-ROCHE-768988

PATIENT
  Sex: Male

DRUGS (4)
  1. AVASTIN [Suspect]
     Dosage: 5TH CYCLE, REPORTED DOSE: 15 MG/KM2/15 DAYS, FORM: INFUSION
     Route: 042
     Dates: end: 20110111
  2. AVASTIN [Suspect]
     Dosage: START DATE: NOV 2010.
     Route: 042
     Dates: start: 20101101
  3. GEMCITABINE [Suspect]
     Dosage: START DATE: NOV 2010.
     Route: 042
     Dates: start: 20101101
  4. GEMCITABINE [Suspect]
     Dosage: 5TH CYCLE, FORM:INFUSION, REPORTED DRUG: GEMCITABINE HOSPIRA
     Route: 042
     Dates: end: 20110110

REACTIONS (2)
  - CYANOSIS [None]
  - SKIN NECROSIS [None]
